FAERS Safety Report 4898588-X (Version None)
Quarter: 2006Q1

REPORT INFORMATION
  Report Type: 
  Country: None (occurrence: None)
  Receive Date: 20060130
  Receipt Date: 20060123
  Transmission Date: 20060701
  Serious: Yes (Hospitalization)
  Sender: FDA-Public Use
  Company Number: 2006-01-1199

PATIENT
  Age: 59 Year
  Sex: Male

DRUGS (3)
  1. AERIUS (DESLORATADINE) TABLETS [Suspect]
     Indication: URTICARIA
     Dosage: 5 MG QD ORAL
     Route: 048
     Dates: start: 20060117, end: 20060118
  2. TROMBYL [Concomitant]
  3. METOPROLOL SUCCINATE [Concomitant]

REACTIONS (4)
  - EYE SWELLING [None]
  - INSOMNIA [None]
  - RASH [None]
  - SWELLING FACE [None]
